FAERS Safety Report 8899859 (Version 1)
Quarter: 2012Q4

REPORT INFORMATION
  Report Type: 
  Country: US (occurrence: US)
  Receive Date: 20121109
  Receipt Date: 20121109
  Transmission Date: 20130627
  Serious: Yes (Death)
  Sender: FDA-Public Use
  Company Number: PHEH2012US021939

PATIENT
  Age: 86 Year
  Sex: Female
  Weight: 52.61 kg

DRUGS (1)
  1. EXJADE [Suspect]
     Indication: IRON METABOLISM DISORDER
     Dosage: 1500 mg, Daily
     Route: 048
     Dates: start: 201205

REACTIONS (2)
  - Septic shock [Fatal]
  - Respiratory failure [Fatal]
